FAERS Safety Report 4596715-5 (Version None)
Quarter: 2005Q1

REPORT INFORMATION
  Report Type: 
  Country: None (occurrence: None)
  Receive Date: 20050302
  Receipt Date: 20040914
  Transmission Date: 20050727
  Serious: Yes (Hospitalization)
  Sender: FDA-Public Use
  Company Number: FR-GLAXOSMITHKLINE-B0345332A

PATIENT
  Age: 78 Year
  Sex: Female

DRUGS (12)
  1. AUGMENTIN '125' [Suspect]
     Dosage: 3G PER DAY
     Route: 048
     Dates: start: 20040716, end: 20040725
  2. ATARAX [Suspect]
     Dosage: 25MG PER DAY
     Route: 048
     Dates: start: 20040810
  3. EQUANIL [Suspect]
     Indication: DEMENTIA
     Dosage: 400MG PER DAY
     Route: 048
     Dates: start: 20040803, end: 20040820
  4. EUPANTOL [Suspect]
     Dosage: 40MG PER DAY
     Route: 048
     Dates: start: 20040714
  5. PROFENID [Suspect]
     Dosage: 50MG PER DAY
     Route: 048
     Dates: start: 20040808, end: 20040817
  6. DAFALGAN [Suspect]
     Dosage: 3G PER DAY
     Route: 048
     Dates: start: 20040807
  7. LOVENOX [Concomitant]
     Dosage: .4UNIT UNKNOWN
     Route: 058
     Dates: start: 20040808
  8. TERCIAN 25 [Concomitant]
     Indication: DEMENTIA
     Dosage: 25MG THREE TIMES PER DAY
     Route: 048
     Dates: start: 20040804
  9. LASILIX [Concomitant]
     Dosage: 40MG PER DAY
     Route: 048
     Dates: start: 20040817
  10. TRANXENE [Concomitant]
     Indication: DEMENTIA
     Route: 065
     Dates: start: 20040820
  11. VITAMINES B1-B6 ROCHE [Concomitant]
     Dosage: 2TAB TWICE PER DAY
     Route: 048
     Dates: start: 20040710
  12. SPECIAFOLDINE [Concomitant]
     Dosage: 5MG TWICE PER DAY
     Route: 048
     Dates: start: 20040710

REACTIONS (2)
  - BLOOD ALKALINE PHOSPHATASE INCREASED [None]
  - GAMMA-GLUTAMYLTRANSFERASE INCREASED [None]
